FAERS Safety Report 11537907 (Version 3)
Quarter: 2015Q4

REPORT INFORMATION
  Report Type: Report from Study
  Country: KR (occurrence: KR)
  Receive Date: 20150922
  Receipt Date: 20151014
  Transmission Date: 20160304
  Serious: Yes (Hospitalization)
  Sender: FDA-Public Use
  Company Number: KR-ROCHE-1636070

PATIENT
  Age: 46 Year
  Sex: Female
  Weight: 61 kg

DRUGS (3)
  1. BACTROBAN [Concomitant]
     Active Substance: MUPIROCIN\MUPIROCIN CALCIUM
     Indication: BREAST INFLAMMATION
     Route: 061
     Dates: start: 20150615
  2. TRAVOCORT [Concomitant]
     Indication: BREAST INFLAMMATION
     Route: 061
     Dates: start: 20150615
  3. TRASTUZUMAB EMTANSINE [Suspect]
     Active Substance: ADO-TRASTUZUMAB EMTANSINE
     Indication: BREAST CANCER
     Dosage: RECEIVED 5TH TRASTUZUMAB EMTANSINE THERAPY: 04/SEP/2015
     Route: 042
     Dates: start: 20150613

REACTIONS (1)
  - Tumour haemorrhage [Recovered/Resolved]

NARRATIVE: CASE EVENT DATE: 20150915
